FAERS Safety Report 6524997-9 (Version None)
Quarter: 2010Q1

REPORT INFORMATION
  Report Type: 
  Country: None (occurrence: None)
  Receive Date: 20100104
  Receipt Date: 20091229
  Transmission Date: 20100710
  Serious: Yes (Life-Threatening)
  Sender: FDA-Public Use
  Company Number: IT-CELGENEUS-083-20785-09110740

PATIENT
  Sex: Female

DRUGS (2)
  1. THALIDOMIDE CELGENE [Suspect]
     Indication: MULTIPLE MYELOMA
     Route: 048
     Dates: start: 20090811, end: 20090912
  2. THALIDOMIDE CELGENE [Suspect]
     Route: 048

REACTIONS (1)
  - CONSTIPATION [None]
